FAERS Safety Report 11229464 (Version 1)
Quarter: 2015Q2

REPORT INFORMATION
  Report Type: Spontaneous
  Country: FR (occurrence: FR)
  Receive Date: 20150630
  Receipt Date: 20150630
  Transmission Date: 20150821
  Serious: Yes (Other)
  Sender: FDA-Public Use
  Company Number: FR-MYLANLABS-FR2012238940

PATIENT

DRUGS (9)
  1. CISPLATIN. [Suspect]
     Active Substance: CISPLATIN
     Indication: THYROID CANCER METASTATIC
     Dosage: 40 MG/M2 Q4W (6 CYCLES)
     Dates: start: 200610
  2. PACLITAXEL. [Suspect]
     Active Substance: PACLITAXEL
     Indication: THYROID CANCER METASTATIC
     Dosage: 175 MG/M2 Q4W (6 CYCLES)
     Route: 065
     Dates: end: 200908
  3. VANDETANIB. [Suspect]
     Active Substance: VANDETANIB
     Indication: THYROID CANCER METASTATIC
     Dosage: 300 MG/DAY
     Dates: end: 200807
  4. SUNITINIB [Suspect]
     Active Substance: SUNITINIB
     Indication: THYROID CANCER METASTATIC
     Dosage: 37.5 THEN 50 MG/DAY D1-21 Q4W
     Dates: start: 201003
  5. SORAFENIB [Suspect]
     Active Substance: SORAFENIB
     Indication: THYROID CANCER METASTATIC
     Dosage: 800 MG, QD
     Dates: start: 200810
  6. SUNITINIB [Suspect]
     Active Substance: SUNITINIB
     Indication: OFF LABEL USE
  7. SORAFENIB [Suspect]
     Active Substance: SORAFENIB
     Indication: OFF LABEL USE
  8. DOXORUBICIN HYDROCHLORIDE. [Suspect]
     Active Substance: DOXORUBICIN HYDROCHLORIDE
     Indication: THYROID CANCER METASTATIC
     Dosage: 60 MG/M2, Q4W (6 CYCLES)
     Route: 065
     Dates: start: 200610
  9. CARBOPLATIN. [Suspect]
     Active Substance: CARBOPLATIN
     Indication: THYROID CANCER METASTATIC
     Dosage: AUC5 Q4W (6 CYCLES)
     Dates: end: 200908

REACTIONS (11)
  - Abdominal pain [Unknown]
  - Asthenia [Unknown]
  - Anaemia [Unknown]
  - Gastrointestinal toxicity [Unknown]
  - Palmar-plantar erythrodysaesthesia syndrome [Unknown]
  - Weight decreased [Unknown]
  - Nausea [Unknown]
  - Diarrhoea [Unknown]
  - Decreased appetite [Unknown]
  - Neurotoxicity [Unknown]
  - Alopecia [Unknown]
